FAERS Safety Report 8858575 (Version 1)
Quarter: 2012Q4

REPORT INFORMATION
  Report Type: 
  Country: US (occurrence: US)
  Receive Date: 20121024
  Receipt Date: 20121024
  Transmission Date: 20130627
  Serious: Yes (Disabling)
  Sender: FDA-Public Use
  Company Number: US-MERCK-1210USA008916

PATIENT

DRUGS (1)
  1. PROPECIA [Suspect]
     Indication: ANDROGENETIC ALOPECIA
     Dosage: UNK
     Dates: start: 200502, end: 200605

REACTIONS (9)
  - Orgasm abnormal [Unknown]
  - Libido decreased [Unknown]
  - Erectile dysfunction [Unknown]
  - Semen analysis abnormal [Unknown]
  - Male genital atrophy [Unknown]
  - Cognitive disorder [Unknown]
  - Amnesia [Unknown]
  - Fatigue [Unknown]
  - Lethargy [Unknown]
